FAERS Safety Report 9097064 (Version 2)
Quarter: 2013Q1

REPORT INFORMATION
  Report Type: Spontaneous
  Country: DK (occurrence: None)
  Receive Date: 20130125
  Receipt Date: 20130213
  Transmission Date: 20140127
  Serious: Yes (Hospitalization)
  Sender: FDA-Public Use
  Company Number: 2013MA000625

PATIENT
  Age: 50 Year
  Sex: Female

DRUGS (7)
  1. DIAZEPAM TABLETS USP, 5 MG (PUREPAC) (DIAZEPAM) [Suspect]
     Indication: PRODUCT USED FOR UNKNOWN INDICATION
     Route: 048
     Dates: start: 20120901, end: 20121012
  2. GABAPENTIN TABLETS, 800 MG (PUREPAC) (GABAPENTIN) [Suspect]
     Indication: NEURALGIA
     Route: 048
     Dates: start: 20120901, end: 20121012
  3. SERTRALINE HYDROCHLORIDE TABLETS, 50 MG (BASE) (ALLEC) (SERTRALINE) [Suspect]
     Indication: DEPRESSION
     Route: 048
     Dates: start: 20120901, end: 20121012
  4. METADON (METHADONE HYDROCHLORIDE) [Suspect]
     Indication: DRUG WITHDRAWAL SYNDROME
     Route: 048
     Dates: start: 20120901, end: 20121012
  5. DUROGESIC (FENTANYL) [Suspect]
     Indication: QUADRIPARESIS
     Dosage: 75 UG; CYCLIC; TDER?09/01/2012  -  10/12/2012
     Route: 062
     Dates: start: 20120901, end: 20121012
  6. BACLOFEN (BACLOFEN) (BACLOFEN) [Suspect]
     Indication: QUADRIPARESIS
     Route: 037
     Dates: start: 20120901, end: 20121012
  7. RIVOTRIL (CLONAZEPAM) [Suspect]
     Indication: QUADRIPARESIS
     Route: 048
     Dates: start: 20120901, end: 20121012

REACTIONS (11)
  - Psychomotor retardation [None]
  - Sopor [None]
  - Aspartate aminotransferase increased [None]
  - Alanine aminotransferase increased [None]
  - Gamma-glutamyltransferase increased [None]
  - Blood fibrinogen increased [None]
  - Hyperammonaemia [None]
  - Platelet count decreased [None]
  - Brain natriuretic peptide increased [None]
  - Prothrombin time prolonged [None]
  - Blood pressure systolic increased [None]
